FAERS Safety Report 5750628-1 (Version None)
Quarter: 2008Q2

REPORT INFORMATION
  Report Type: 
  Country: None (occurrence: None)
  Receive Date: 20080528
  Receipt Date: 20080418
  Transmission Date: 20081010
  Serious: No
  Sender: FDA-Public Use
  Company Number: US-ABBOTT-08P-163-0448248-00

PATIENT
  Sex: Female
  Weight: 59.02 kg

DRUGS (7)
  1. SIMCOR [Suspect]
     Indication: BLOOD CHOLESTEROL INCREASED
     Dosage: 500MG/20MG
     Route: 048
     Dates: start: 20080416
  2. SERETIDE [Concomitant]
     Indication: ASTHMA
     Dosage: 100/50
     Route: 055
  3. MONTELUKAST SODIUM [Concomitant]
     Indication: ASTHMA
     Route: 048
  4. MULTI-VITAMIN [Concomitant]
     Indication: VITAMIN SUPPLEMENTATION
     Route: 048
  5. ESOMEPRAZOLE MAGNESIUM [Concomitant]
     Indication: GASTROOESOPHAGEAL REFLUX DISEASE
     Route: 048
  6. CALCIUM CITRATE [Concomitant]
     Indication: OSTEOPOROSIS
     Route: 048
  7. BUDESONIDE [Concomitant]
     Indication: SINUS DISORDER
     Route: 045

REACTIONS (2)
  - FLUSHING [None]
  - LARYNGITIS [None]
